FAERS Safety Report 9036359 (Version 1)
Quarter: 2013Q1

REPORT INFORMATION
  Report Type: Spontaneous
  Country: US (occurrence: None)
  Receive Date: 20130123
  Receipt Date: 20130123
  Transmission Date: 20140127
  Serious: Yes (Hospitalization)
  Sender: FDA-Public Use
  Company Number: None

PATIENT
  Age: 67 Year
  Sex: Male
  Weight: 55.34 kg

DRUGS (5)
  1. XARELTO [Suspect]
     Indication: DEEP VEIN THROMBOSIS
     Route: 048
     Dates: start: 20130102, end: 20130115
  2. ASPIRIN [Concomitant]
  3. ATIVAN [Concomitant]
  4. HYDROCHLOROTHIAZIDE [Concomitant]
  5. KCL [Concomitant]

REACTIONS (5)
  - Haemoglobin decreased [None]
  - Haematocrit decreased [None]
  - Platelet count decreased [None]
  - Red blood cell count decreased [None]
  - Occult blood positive [None]
